FAERS Safety Report 24934626 (Version 2)
Quarter: 2025Q1

REPORT INFORMATION
  Report Type: Report from Study
  Country: DE (occurrence: DE)
  Receive Date: 20250206
  Receipt Date: 20250214
  Transmission Date: 20250409
  Serious: Yes (Other)
  Sender: ROCHE
  Company Number: DE-ML39632-2424562-0

PATIENT
  Age: 63 Year
  Sex: Male
  Weight: 100 kg

DRUGS (23)
  1. OCREVUS [Suspect]
     Active Substance: OCRELIZUMAB
     Indication: Primary progressive multiple sclerosis
     Route: 042
     Dates: start: 20200407, end: 20200417
  2. OCREVUS [Suspect]
     Active Substance: OCRELIZUMAB
     Route: 042
     Dates: start: 20201029
  3. MOXONIDINE [Concomitant]
     Active Substance: MOXONIDINE
     Indication: Hypertension
     Route: 048
  4. BionTech COVID-19-Impfstoff [Concomitant]
     Indication: COVID-19 prophylaxis
     Route: 030
     Dates: start: 20220110, end: 20220110
  5. BionTech COVID-19-Impfstoff [Concomitant]
     Route: 030
     Dates: start: 20210512, end: 20210512
  6. BionTech COVID-19-Impfstoff [Concomitant]
     Route: 030
     Dates: start: 20210422, end: 20210422
  7. BACLOFEN [Concomitant]
     Active Substance: BACLOFEN
     Indication: Muscle spasticity
     Route: 048
  8. INDAPAMIDE [Concomitant]
     Active Substance: INDAPAMIDE
     Indication: Hypertension
     Route: 048
  9. CANDESARTAN [Concomitant]
     Active Substance: CANDESARTAN
     Route: 048
  10. PANTOPRAZOLE SODIUM [Concomitant]
     Active Substance: PANTOPRAZOLE SODIUM
     Route: 048
  11. CHOLECALCIFEROL [Concomitant]
     Active Substance: CHOLECALCIFEROL
     Route: 048
  12. POLYETHYLENE GLYCOL 3350\POTASSIUM CHLORIDE\SODIUM BICARBONATE\SODIUM [Concomitant]
     Active Substance: POLYETHYLENE GLYCOL 3350\POTASSIUM CHLORIDE\SODIUM BICARBONATE\SODIUM CHLORIDE
     Indication: Constipation
     Route: 048
     Dates: start: 20210821
  13. EBASTINE [Concomitant]
     Active Substance: EBASTINE
     Route: 048
     Dates: start: 202004
  14. BENSERAZIDE\LEVODOPA [Concomitant]
     Active Substance: BENSERAZIDE\LEVODOPA
     Indication: Restless legs syndrome
     Route: 048
  15. ASPIRIN [Concomitant]
     Active Substance: ASPIRIN
     Dates: start: 202102
  16. GABAPENTIN [Concomitant]
     Active Substance: GABAPENTIN
     Dates: start: 20210705
  17. AMLODIPINE [Concomitant]
     Active Substance: AMLODIPINE BESYLATE
     Route: 048
     Dates: start: 2005
  18. TIZANIDINE [Concomitant]
     Active Substance: TIZANIDINE
     Indication: Muscle spasticity
     Route: 048
     Dates: start: 201709
  19. Dimeticon [Concomitant]
     Route: 048
  20. NABIXIMOLS [Concomitant]
     Active Substance: NABIXIMOLS
     Route: 048
     Dates: start: 202002
  21. PREDNISOLONE [Concomitant]
     Active Substance: PREDNISOLONE
     Route: 042
     Dates: start: 20200407
  22. CITALOPRAM HYDROBROMIDE [Concomitant]
     Active Substance: CITALOPRAM HYDROBROMIDE
     Route: 048
     Dates: start: 201910
  23. Laxoberal Tropfen [Concomitant]
     Indication: Constipation
     Route: 048
     Dates: start: 20210821

REACTIONS (1)
  - Epididymitis [Unknown]

NARRATIVE: CASE EVENT DATE: 20250125
